FAERS Safety Report 17996519 (Version 2)
Quarter: 2020Q4

REPORT INFORMATION
  Report Type: Spontaneous
  Country: US (occurrence: US)
  Receive Date: 20200709
  Receipt Date: 20201002
  Transmission Date: 20210113
  Serious: Yes (Death, Hospitalization, Other)
  Sender: FDA-Public Use
  Company Number: US-TAKEDA-2020TUS029684

PATIENT

DRUGS (1)
  1. ULORIC [Suspect]
     Active Substance: FEBUXOSTAT
     Indication: GOUT
     Dosage: 40 MILLIGRAM
     Route: 048
     Dates: start: 20180112, end: 20180507

REACTIONS (4)
  - Acute myocardial infarction [Not Recovered/Not Resolved]
  - Sudden cardiac death [Fatal]
  - Ischaemic cardiomyopathy [Fatal]
  - Coronary artery disease [Fatal]

NARRATIVE: CASE EVENT DATE: 20180508
